FAERS Safety Report 20380831 (Version 1)
Quarter: 2022Q1

REPORT INFORMATION
  Report Type: Spontaneous
  Country: US (occurrence: US)
  Receive Date: 20220127
  Receipt Date: 20220127
  Transmission Date: 20220423
  Serious: Yes (Hospitalization, Other)
  Sender: FDA-Public Use
  Company Number: US-AUROBINDO-AUR-APL-2022-001775

PATIENT
  Age: 2 Year
  Sex: Female

DRUGS (2)
  1. KETAMINE HYDROCHLORIDE [Suspect]
     Active Substance: KETAMINE HYDROCHLORIDE
     Indication: Product used for unknown indication
     Dosage: 20 MILLIGRAM/KILOGRAM
     Route: 030
  2. GLYCOPYRROLATE [Concomitant]
     Active Substance: GLYCOPYRROLATE
     Indication: Product used for unknown indication
     Dosage: 0.1 MILLIGRAM
     Route: 042

REACTIONS (7)
  - Apnoea [Unknown]
  - Sedation [Unknown]
  - Secretion discharge [Unknown]
  - Hypertension [Unknown]
  - Heart rate increased [Unknown]
  - Overdose [Unknown]
  - Product administration error [Unknown]
